FAERS Safety Report 17891922 (Version 3)
Quarter: 2020Q2

REPORT INFORMATION
  Report Type: Report from Study
  Country: BR (occurrence: BR)
  Receive Date: 20200612
  Receipt Date: 20200627
  Transmission Date: 20200714
  Serious: Yes (Other)
  Sender: FDA-Public Use
  Company Number: PHHY2018BR003401

PATIENT
  Age: 28 Year
  Sex: Female
  Weight: 74 kg

DRUGS (5)
  1. ALENIA [Concomitant]
     Indication: ASTHMA
     Dosage: UNK, BID, 3 YEARS AGO
     Route: 055
  2. COSENTYX [Suspect]
     Active Substance: SECUKINUMAB
     Indication: PSORIASIS
     Dosage: 300 MG, QW
     Route: 058
     Dates: start: 20180402
  3. ZINA [Concomitant]
     Active Substance: LEVOCETIRIZINE DIHYDROCHLORIDE
     Indication: ASTHMA
     Dosage: 1 DF, QD, 3 YEARS AGO
     Route: 048
  4. COSENTYX [Suspect]
     Active Substance: SECUKINUMAB
     Indication: PSORIATIC ARTHROPATHY
     Dosage: 300 MG, UNKNOWN
     Route: 065
     Dates: start: 20180319
  5. COSENTYX [Suspect]
     Active Substance: SECUKINUMAB
     Dosage: 2 DF, QMO
     Route: 065
     Dates: start: 20180416

REACTIONS (22)
  - Rhinitis [Unknown]
  - Mental disorder [Unknown]
  - Panic attack [Recovered/Resolved]
  - Injection site pain [Unknown]
  - Incorrect dose administered [Unknown]
  - Chest discomfort [Not Recovered/Not Resolved]
  - Limb injury [Not Recovered/Not Resolved]
  - Skin warm [Not Recovered/Not Resolved]
  - Dyspnoea [Recovered/Resolved]
  - Pain [Not Recovered/Not Resolved]
  - Injury [Not Recovered/Not Resolved]
  - Skin plaque [Not Recovered/Not Resolved]
  - Suspected COVID-19 [Unknown]
  - Pain in extremity [Not Recovered/Not Resolved]
  - Psoriasis [Unknown]
  - Fatigue [Not Recovered/Not Resolved]
  - Influenza [Unknown]
  - Pyrexia [Recovered/Resolved]
  - Wheezing [Unknown]
  - Fear [Recovered/Resolved]
  - Arthralgia [Not Recovered/Not Resolved]
  - Injection site haemorrhage [Unknown]

NARRATIVE: CASE EVENT DATE: 20180416
